FAERS Safety Report 24980264 (Version 1)
Quarter: 2025Q1

REPORT INFORMATION
  Report Type: Spontaneous
  Country: US (occurrence: US)
  Receive Date: 20250218
  Receipt Date: 20250218
  Transmission Date: 20250409
  Serious: No
  Sender: ROCHE
  Company Number: US-ROCHE-10000209811

PATIENT
  Age: 26 Year
  Sex: Female

DRUGS (5)
  1. CELLCEPT [Suspect]
     Active Substance: MYCOPHENOLATE MOFETIL
     Indication: Lupus nephritis
     Route: 048
     Dates: start: 202104, end: 202204
  2. VALSARTAN [Concomitant]
     Active Substance: VALSARTAN
     Dates: start: 202104
  3. HYDROXYCHLOROQUINE [Concomitant]
     Active Substance: HYDROXYCHLOROQUINE
     Route: 048
     Dates: start: 202104
  4. LUPKYNIS [Concomitant]
     Active Substance: VOCLOSPORIN
     Route: 048
     Dates: start: 2021
  5. PREDNISONE [Concomitant]
     Active Substance: PREDNISONE
     Route: 048
     Dates: start: 202104

REACTIONS (2)
  - Off label use [Unknown]
  - No adverse event [Unknown]
